FAERS Safety Report 21914700 (Version 3)
Quarter: 2024Q3

REPORT INFORMATION
  Report Type: Spontaneous
  Country: BR (occurrence: BR)
  Receive Date: 20230126
  Receipt Date: 20240815
  Transmission Date: 20241017
  Serious: Yes (Death)
  Sender: CELLTRION
  Company Number: BR-CELLTRION INC.-2023BR001570

PATIENT

DRUGS (1)
  1. INFLIXIMAB [Suspect]
     Active Substance: INFLIXIMAB
     Indication: Crohn^s disease
     Dosage: ROUTE OF ADMINISTRATION: ENDOVENOUS
     Route: 042
     Dates: start: 20230111, end: 202309

REACTIONS (3)
  - Unevaluable event [Fatal]
  - Therapy interrupted [Unknown]
  - Drug monitoring procedure not performed [Unknown]
